FAERS Safety Report 6452036-7 (Version None)
Quarter: 2009Q4

REPORT INFORMATION
  Report Type: 
  Country: None (occurrence: None)
  Receive Date: 20091123
  Receipt Date: 20091111
  Transmission Date: 20100525
  Serious: Yes (Other)
  Sender: FDA-Public Use
  Company Number: SE-GENENTECH-294555

PATIENT
  Sex: Male
  Weight: 4.2 kg

DRUGS (3)
  1. ACTIVASE [Suspect]
     Indication: VENA CAVA THROMBOSIS
     Dosage: 0.1 MG/K/H, UNK
     Route: 042
  2. ACTIVASE [Suspect]
     Indication: RENAL VEIN THROMBOSIS
  3. HEPARIN [Suspect]
     Indication: ANTICOAGULANT THERAPY
     Dosage: UNK

REACTIONS (1)
  - CATHETER SITE HAEMORRHAGE [None]
